FAERS Safety Report 8243066-3 (Version None)
Quarter: 2012Q1

REPORT INFORMATION
  Report Type: 
  Country: None (occurrence: None)
  Receive Date: 20120329
  Receipt Date: 20120323
  Transmission Date: 20120608
  Serious: No
  Sender: FDA-Public Use
  Company Number: US-BAYER-2012-029570

PATIENT
  Age: 80 Year
  Sex: Female
  Weight: 82 kg

DRUGS (2)
  1. LIPITOR [Concomitant]
  2. ALEVE (CAPLET) [Suspect]
     Indication: PAIN
     Dosage: 2 DF, BID
     Route: 048

REACTIONS (1)
  - NO ADVERSE EVENT [None]
